FAERS Safety Report 15295481 (Version 3)
Quarter: 2019Q2

REPORT INFORMATION
  Report Type: Spontaneous
  Country: JP (occurrence: JP)
  Receive Date: 20180820
  Receipt Date: 20190528
  Transmission Date: 20190711
  Serious: Yes (Other)
  Sender: FDA-Public Use
  Company Number: JP-ELI_LILLY_AND_COMPANY-JP201808005259

PATIENT
  Age: 64 Year
  Sex: Male
  Weight: 65 kg

DRUGS (16)
  1. CYRAMZA [Suspect]
     Active Substance: RAMUCIRUMAB
     Indication: RECTAL ADENOCARCINOMA
     Dosage: 500 MG, OTHER
     Route: 041
     Dates: start: 20180612, end: 20180717
  2. NATRIX [Concomitant]
     Active Substance: INDAPAMIDE
     Indication: CARDIAC FAILURE
     Dosage: 1 MG, EACH MORNING
     Route: 048
     Dates: start: 20180814, end: 20180924
  3. AMLODIPINE [Concomitant]
     Active Substance: AMLODIPINE BESYLATE
     Indication: HYPERTENSION
     Dosage: 5 MG, UNK
     Route: 048
     Dates: start: 20180130, end: 20180813
  4. AMLODIPINE [Concomitant]
     Active Substance: AMLODIPINE BESYLATE
     Dosage: 10 MG, UNK
     Route: 048
     Dates: start: 20180814, end: 20180924
  5. KYTRIL [Concomitant]
     Active Substance: GRANISETRON HYDROCHLORIDE
     Indication: SUPPORTIVE CARE
     Dosage: UNK
  6. AVAPRO [Concomitant]
     Active Substance: IRBESARTAN
     Dosage: 200 MG, UNK
     Route: 048
     Dates: start: 20180717, end: 20180924
  7. IRINOTECAN [Concomitant]
     Active Substance: IRINOTECAN
     Indication: RECTAL ADENOCARCINOMA
     Dosage: 200 MG, UNK
     Dates: start: 20180911
  8. TOPOTECIN [Concomitant]
     Active Substance: IRINOTECAN HYDROCHLORIDE
     Indication: RECTAL ADENOCARCINOMA
     Dosage: 300 MG, OTHER
     Route: 041
     Dates: start: 20180612, end: 20180717
  9. AMLODIPINE [Concomitant]
     Active Substance: AMLODIPINE BESYLATE
     Dosage: 5 MG, UNK
     Route: 048
     Dates: start: 20180925
  10. AZOSEMIDE [Suspect]
     Active Substance: AZOSEMIDE
     Indication: CARDIAC FAILURE
     Dosage: 15 MG, EACH MORNING
     Route: 048
     Dates: start: 20180807, end: 20181022
  11. SPIRONOLACTONE. [Suspect]
     Active Substance: SPIRONOLACTONE
     Indication: CARDIAC FAILURE
     Dosage: 25 MG, EACH MORNING
     Route: 048
     Dates: start: 20180807, end: 20181022
  12. LEVOFOLINATE CALCIUM [Concomitant]
     Active Substance: LEVOLEUCOVORIN CALCIUM
     Indication: RECTAL ADENOCARCINOMA
     Dosage: 350 MG, OTHER
     Route: 041
     Dates: start: 20180612, end: 20180612
  13. 5 FU [Concomitant]
     Active Substance: FLUOROURACIL
     Indication: RECTAL ADENOCARCINOMA
     Dosage: 4000 MG, OTHER
     Route: 041
     Dates: start: 20180612, end: 20180612
  14. AVAPRO [Concomitant]
     Active Substance: IRBESARTAN
     Indication: HYPERTENSION
     Dosage: 100 MG, UNK
     Route: 048
     Dates: start: 20180109, end: 20180716
  15. AVAPRO [Concomitant]
     Active Substance: IRBESARTAN
     Dosage: 100 MG, UNK
     Route: 048
     Dates: start: 20180925
  16. VECTIBIX [Concomitant]
     Active Substance: PANITUMUMAB
     Indication: RECTAL ADENOCARCINOMA
     Dosage: 300 MG, UNK
     Dates: start: 20180911

REACTIONS (3)
  - Cardiac failure [Recovering/Resolving]
  - Nocturia [Recovered/Resolved]
  - Hypertension [Recovering/Resolving]

NARRATIVE: CASE EVENT DATE: 201807
